FAERS Safety Report 8611267-8 (Version None)
Quarter: 2012Q3

REPORT INFORMATION
  Report Type: 
  Country: None (occurrence: None)
  Receive Date: 20120822
  Receipt Date: 20120815
  Transmission Date: 20120928
  Serious: Yes (Other)
  Sender: FDA-Public Use
  Company Number: US-ASTELLAS-2012US006993

PATIENT
  Sex: Male
  Weight: 77 kg

DRUGS (1)
  1. ERLOTINIB HYDROCHLORIDE [Suspect]
     Indication: NON-SMALL CELL LUNG CANCER
     Dosage: 150 MG, UID/QD
     Route: 048
     Dates: start: 20110911, end: 20120801

REACTIONS (3)
  - PLEURITIC PAIN [None]
  - COLITIS ULCERATIVE [None]
  - DYSPNOEA [None]
